FAERS Safety Report 9279448 (Version 1)
Quarter: 2013Q2

REPORT INFORMATION
  Report Type: Spontaneous
  Country: US (occurrence: US)
  Receive Date: 20130508
  Receipt Date: 20130508
  Transmission Date: 20140414
  Serious: No
  Sender: FDA-Public Use
  Company Number: US-009507513-1304USA014827

PATIENT
  Age: 67 Year
  Sex: Female

DRUGS (3)
  1. TRUSOPT [Suspect]
     Indication: INTRAOCULAR PRESSURE INCREASED
     Dosage: 1 GTT, QD-EACH EYE
     Route: 047
     Dates: start: 2008
  2. ADALAT [Suspect]
     Indication: HYPERTENSION
  3. LUMIGAN [Suspect]
     Dosage: 1 GTT, QPM- EACH EYE
     Route: 047
     Dates: start: 2008

REACTIONS (4)
  - Heart rate increased [Recovered/Resolved]
  - Vitreous floaters [Recovered/Resolved]
  - Eyelash hyperpigmentation [Unknown]
  - Drug dose omission [Unknown]
